FAERS Safety Report 9805313 (Version 1)
Quarter: 2014Q1

REPORT INFORMATION
  Report Type: Spontaneous
  Country: US (occurrence: None)
  Receive Date: 20140108
  Receipt Date: 20140108
  Transmission Date: 20141002
  Serious: Yes (Hospitalization, Disabling)
  Sender: FDA-Public Use
  Company Number: None

PATIENT
  Age: 57 Year
  Sex: Male

DRUGS (7)
  1. TYGACIL [Suspect]
     Indication: SKIN ULCER
     Dates: start: 201309, end: 201309
  2. POTASSIUM FUROSEMIDE [Concomitant]
  3. METORLOPRAMIDE [Concomitant]
  4. LISINOPRIL [Concomitant]
  5. ATORVASTATIN [Concomitant]
  6. CIPROFLOXACIN [Concomitant]
  7. METRONIDAZOLE [Concomitant]

REACTIONS (2)
  - Oedema peripheral [None]
  - Swelling [None]
